FAERS Safety Report 8184658-X (Version None)
Quarter: 2012Q1

REPORT INFORMATION
  Report Type: 
  Country: None (occurrence: None)
  Receive Date: 20120301
  Receipt Date: 20120301
  Transmission Date: 20120608
  Serious: Yes (Other)
  Sender: FDA-Public Use
  Company Number: JPI-P-019903

PATIENT
  Age: 30 Year
  Sex: Female

DRUGS (4)
  1. MULTIPLE UNSPECIFIED MEDICATIONS [Concomitant]
  2. XYREM [Suspect]
     Indication: NARCOLEPSY
     Dosage: ORAL,  7.5 GM (3.75 GM,2 IN 1 D),ORAL
     Route: 048
     Dates: start: 20120201
  3. XYREM [Suspect]
     Indication: NARCOLEPSY
     Dosage: ORAL,  7.5 GM (3.75 GM,2 IN 1 D),ORAL
     Route: 048
     Dates: start: 20110728
  4. XYREM [Suspect]
     Indication: NARCOLEPSY
     Dosage: ORAL,  7.5 GM (3.75 GM,2 IN 1 D),ORAL
     Route: 048
     Dates: start: 20110101, end: 20111220

REACTIONS (11)
  - PROCEDURAL PAIN [None]
  - HYPERHIDROSIS [None]
  - NECK PAIN [None]
  - MUSCULOSKELETAL PAIN [None]
  - NERVE INJURY [None]
  - TRANSPLANT [None]
  - INTERVERTEBRAL DISC PROTRUSION [None]
  - PAIN IN EXTREMITY [None]
  - MYOSITIS [None]
  - SKIN ODOUR ABNORMAL [None]
  - HYPOAESTHESIA [None]
